FAERS Safety Report 8769247 (Version 2)
Quarter: 2013Q4

REPORT INFORMATION
  Report Type: Spontaneous
  Country: US (occurrence: US)
  Receive Date: 20120905
  Receipt Date: 20131101
  Transmission Date: 20140711
  Serious: No
  Sender: FDA-Public Use
  Company Number: US-009507513-1208USA012280

PATIENT
  Sex: Male

DRUGS (2)
  1. TICE BCG LIVE [Suspect]
     Indication: PROPHYLAXIS
     Dosage: UNK
     Route: 043
     Dates: start: 2012, end: 2012
  2. TICE BCG LIVE [Suspect]
     Dosage: UNK
     Route: 043
     Dates: start: 2012, end: 2012

REACTIONS (2)
  - Haemorrhage urinary tract [Not Recovered/Not Resolved]
  - Haematuria [Not Recovered/Not Resolved]
